FAERS Safety Report 17492610 (Version 2)
Quarter: 2020Q2

REPORT INFORMATION
  Report Type: Spontaneous
  Country: GB (occurrence: GB)
  Receive Date: 20200304
  Receipt Date: 20200630
  Transmission Date: 20200713
  Serious: Yes (Death)
  Sender: FDA-Public Use
  Company Number: GB-REGENERON PHARMACEUTICALS, INC.-2020-22391

PATIENT

DRUGS (2)
  1. ASPIRIN [ACETYLSALICYLIC ACID] [Concomitant]
     Active Substance: ASPIRIN
     Indication: DEEP VEIN THROMBOSIS
     Dosage: 1 DF, QD
  2. EYLEA [Suspect]
     Active Substance: AFLIBERCEPT
     Indication: MACULAR DEGENERATION
     Dosage: 0.05 MG, UNK
     Route: 051
     Dates: start: 20181018

REACTIONS (10)
  - Pulmonary embolism [Fatal]
  - Diarrhoea [Fatal]
  - Contraindicated product prescribed [Fatal]
  - Influenza like illness [Fatal]
  - Cough [Fatal]
  - Cardiac murmur [Fatal]
  - Lethargy [Fatal]
  - Myocardial infarction [Fatal]
  - Fatigue [Fatal]
  - Limb discomfort [Fatal]
